FAERS Safety Report 10631768 (Version 2)
Quarter: 2014Q4

REPORT INFORMATION
  Report Type: Report from Study
  Country: MY (occurrence: MY)
  Receive Date: 20141205
  Receipt Date: 20141205
  Transmission Date: 20150529
  Serious: Yes (Hospitalization, Other)
  Sender: FDA-Public Use
  Company Number: PHHY2014MY106801

PATIENT
  Sex: Male

DRUGS (1)
  1. GLIVEC [Suspect]
     Active Substance: IMATINIB MESYLATE
     Indication: CHRONIC MYELOID LEUKAEMIA
     Dosage: 400 MG, BID
     Route: 065
     Dates: end: 201408

REACTIONS (7)
  - White blood cell count increased [Unknown]
  - Cytopenia [Unknown]
  - Anaemia [Unknown]
  - Fibrosis [Unknown]
  - Platelet count decreased [Unknown]
  - No therapeutic response [Unknown]
  - Splenomegaly [Unknown]
